FAERS Safety Report 5205957-7 (Version None)
Quarter: 2007Q1

REPORT INFORMATION
  Report Type: 
  Country: None (occurrence: None)
  Receive Date: 20070108
  Receipt Date: 20061221
  Transmission Date: 20070707
  Serious: Yes (Life-Threatening, Hospitalization)
  Sender: FDA-Public Use
  Company Number: TCI2006A05897

PATIENT
  Age: 74 Year
  Sex: Female

DRUGS (10)
  1. ACTOS [Suspect]
     Indication: DIABETES MELLITUS
     Dosage: 15 MG (15 MG, 1 - 2) PER ORAL
     Route: 048
     Dates: start: 20060218, end: 20061126
  2. HYPNOTICS AND SEDATIVES [Suspect]
     Dates: end: 20061126
  3. DIOVAN [Concomitant]
  4. TENORMIN [Concomitant]
  5. ANPLAG (SARPOGRELATE HYDROCHLORIDE) [Concomitant]
  6. PLETAL [Concomitant]
  7. ASPIRIN [Concomitant]
  8. SIGMART (NOCORANDIL) [Concomitant]
  9. LIPIDIL [Concomitant]
  10. LOSARTAN POTASSIUM [Concomitant]

REACTIONS (5)
  - ASTHENIA [None]
  - HYPOGLYCAEMIA [None]
  - LOSS OF CONSCIOUSNESS [None]
  - UNRESPONSIVE TO STIMULI [None]
  - URINARY INCONTINENCE [None]
